FAERS Safety Report 6758070-1 (Version None)
Quarter: 2010Q2

REPORT INFORMATION
  Report Type: 
  Country: None (occurrence: None)
  Receive Date: 20100607
  Receipt Date: 20100528
  Transmission Date: 20101027
  Serious: Yes (Hospitalization)
  Sender: FDA-Public Use
  Company Number: JP-ASTRAZENECA-2010SE23871

PATIENT
  Age: 17380 Day
  Sex: Female

DRUGS (11)
  1. XYLOCAINE [Suspect]
     Indication: PAIN MANAGEMENT
     Dosage: 300 - 576 MG/DAY CONTINUOUS ADMINISTRATION.
     Route: 058
     Dates: start: 20100305, end: 20100430
  2. MORPHINE HYDROCHLORIDE [Suspect]
     Indication: PAIN MANAGEMENT
     Dosage: 72 - 200 MG/DAY CONTINUOUS ADMINISTRATION.
     Route: 058
     Dates: start: 20100218, end: 20100430
  3. OMERAP [Concomitant]
     Indication: REFLUX OESOPHAGITIS
     Route: 048
     Dates: start: 20100218
  4. RINESTERON [Concomitant]
     Indication: NEURALGIA
     Route: 048
     Dates: start: 20100218, end: 20100413
  5. RINESTERON [Concomitant]
     Route: 048
     Dates: start: 20100430
  6. AMOXAN [Concomitant]
     Indication: ANXIETY
     Route: 048
     Dates: start: 20100222
  7. BIOFERMIN [Concomitant]
     Indication: DISBACTERIOSIS
     Route: 048
     Dates: start: 20100315
  8. CEROCRAL [Concomitant]
     Indication: NEURALGIA
     Route: 048
     Dates: start: 20100331, end: 20100519
  9. RIVOTRIL [Concomitant]
     Indication: NEURALGIA
     Route: 048
     Dates: start: 20100401, end: 20100512
  10. LENDORMIN [Concomitant]
     Indication: INSOMNIA
     Route: 048
     Dates: start: 20100404
  11. RINDERON [Concomitant]
     Indication: NEURALGIA
     Dosage: 4 MG - DAILY CONTINUOUS ADMINISTRATION.
     Route: 058
     Dates: start: 20100414, end: 20100419

REACTIONS (1)
  - SKIN NECROSIS [None]
